FAERS Safety Report 9808204 (Version 1)
Quarter: 2014Q1

REPORT INFORMATION
  Report Type: Spontaneous
  Country: JP (occurrence: JP)
  Receive Date: 20140110
  Receipt Date: 20140110
  Transmission Date: 20141002
  Serious: Yes (Death)
  Sender: FDA-Public Use
  Company Number: JP-MALLINCKRODT-T201305233

PATIENT
  Age: 66 Year
  Sex: Female
  Weight: 47.8 kg

DRUGS (9)
  1. METHADONE [Suspect]
     Indication: CANCER PAIN
     Dosage: 10 MG, (30 MG DAILY DOSE)
     Route: 048
     Dates: start: 20131125, end: 20131202
  2. METHADONE [Suspect]
     Dosage: 15 MG, (45 MG DAILY DOSE)
     Route: 048
     Dates: start: 20131202, end: 20131204
  3. DECADRON [Concomitant]
     Dosage: 1 MG, UNK
     Route: 048
     Dates: start: 20131127, end: 20131130
  4. DECADRON [Concomitant]
     Dosage: 0.5 MG, UNK
     Route: 048
     Dates: start: 20131201, end: 20131204
  5. GASTER [Concomitant]
     Dosage: 40 MG, UNK
     Route: 051
     Dates: start: 20131112, end: 20131204
  6. DUROTEP [Concomitant]
     Dosage: UNK
     Route: 062
     Dates: end: 20131204
  7. OXYFAST [Concomitant]
     Dosage: 200 MG, UNK
     Route: 051
     Dates: start: 20131111, end: 20131204
  8. DORMICUM [Concomitant]
     Dosage: 1 DF, UNK
     Route: 051
     Dates: start: 20131118, end: 20131123
  9. DORMICUM [Concomitant]
     Dosage: 2 DF, UNK
     Route: 051
     Dates: start: 20131124, end: 20131204

REACTIONS (1)
  - Uterine cancer [Fatal]
